FAERS Safety Report 19866734 (Version 4)
Quarter: 2022Q1

REPORT INFORMATION
  Report Type: Spontaneous
  Country: US (occurrence: US)
  Receive Date: 20210922
  Receipt Date: 20220105
  Transmission Date: 20220423
  Serious: Yes (Life-Threatening, Hospitalization, Other)
  Sender: FDA-Public Use
  Company Number: US-MLMSERVICE-20210907-3093652-1

PATIENT
  Age: 65 Year
  Sex: Male
  Weight: 105.6 kg

DRUGS (11)
  1. LISINOPRIL [Suspect]
     Active Substance: LISINOPRIL
     Indication: Product used for unknown indication
     Dosage: UNK
     Route: 065
  2. VANCOMYCIN [Suspect]
     Active Substance: VANCOMYCIN
     Indication: Wound dehiscence
     Dosage: 1.5 GRAM (1.5 GRAMS IN NS 0.9% 280ML TOTAL VOLUME), TWO TIMES A DAY
     Route: 041
     Dates: start: 202002, end: 202002
  3. VANCOMYCIN [Suspect]
     Active Substance: VANCOMYCIN
     Indication: Wound secretion
     Dosage: 2 GRAM (2 GRAMS IN NS 0.9% 540ML TOTAL VOLUME), TWO TIMES A DAY
     Route: 041
     Dates: start: 20200222, end: 202002
  4. VANCOMYCIN [Suspect]
     Active Substance: VANCOMYCIN
     Dosage: 1.5 GRAM (1.5 GRAMS IN NS 0.9% 280ML TOTAL VOLUME), 3 TIMES A DAY
     Route: 041
     Dates: start: 202002, end: 202002
  5. VANCOMYCIN [Suspect]
     Active Substance: VANCOMYCIN
     Dosage: 1 GRAM
     Route: 041
     Dates: start: 202002, end: 20200229
  6. VANCOMYCIN [Suspect]
     Active Substance: VANCOMYCIN
     Dosage: UNK
     Route: 065
     Dates: start: 2020, end: 202003
  7. SODIUM CHLORIDE [Concomitant]
     Active Substance: SODIUM CHLORIDE
     Indication: Product used for unknown indication
     Dosage: 540 LITER
     Route: 041
     Dates: start: 20200222, end: 202002
  8. SODIUM CHLORIDE [Concomitant]
     Active Substance: SODIUM CHLORIDE
     Dosage: 280 LITER
     Route: 041
     Dates: start: 202002, end: 202002
  9. SODIUM CHLORIDE [Concomitant]
     Active Substance: SODIUM CHLORIDE
     Dosage: 250 LITER
     Route: 041
     Dates: start: 202002, end: 20200229
  10. TRAZODONE [Concomitant]
     Active Substance: TRAZODONE HYDROCHLORIDE
     Indication: Major depression
     Dosage: UNK
     Route: 065
     Dates: end: 202003
  11. VENLAFAXINE [Concomitant]
     Active Substance: VENLAFAXINE HYDROCHLORIDE
     Indication: Major depression
     Dosage: UNK
     Route: 065
     Dates: end: 202003

REACTIONS (13)
  - Nervous system disorder [Recovered/Resolved]
  - Pleocytosis [Recovered/Resolved]
  - Acute kidney injury [Recovered/Resolved]
  - Pulmonary oedema [Recovered/Resolved]
  - Hepatic enzyme increased [Recovered/Resolved]
  - Encephalopathy [Recovered/Resolved]
  - Renal tubular necrosis [Recovered/Resolved]
  - Multiple organ dysfunction syndrome [Recovered/Resolved]
  - Acute respiratory failure [Recovered/Resolved]
  - Acute respiratory distress syndrome [Recovered/Resolved]
  - Drug reaction with eosinophilia and systemic symptoms [Recovered/Resolved]
  - Drug hypersensitivity [Unknown]
  - Cough [Unknown]

NARRATIVE: CASE EVENT DATE: 20200301
